FAERS Safety Report 7862533-5 (Version None)
Quarter: 2011Q4

REPORT INFORMATION
  Report Type: 
  Country: None (occurrence: None)
  Receive Date: 20111025
  Receipt Date: 20111010
  Transmission Date: 20120403
  Serious: Yes (Hospitalization)
  Sender: FDA-Public Use
  Company Number: DSA_47919_2011

PATIENT
  Age: 49 Year
  Sex: Female

DRUGS (3)
  1. METOPROLOL TARTRATE [Suspect]
     Indication: PRODUCT USED FOR UNKNOWN INDICATION
     Dosage: ONE TIME NOT THE PRESCRIBED AMOUNT, DF
  2. CLONAZEPAM [Suspect]
     Indication: PRODUCT USED FOR UNKNOWN INDICATION
     Dosage: ONE TIME NOT THE PRESCRIBED AMOUNT, DF
  3. CARDIZEM [Suspect]
     Indication: PRODUCT USED FOR UNKNOWN INDICATION
     Dosage: ONE TIME NOT THE PRESCRIBED AMOUNT, DF

REACTIONS (17)
  - NODAL ARRHYTHMIA [None]
  - BLOOD SODIUM DECREASED [None]
  - ACIDOSIS [None]
  - HYPOTHYROIDISM [None]
  - TOXICITY TO VARIOUS AGENTS [None]
  - ATRIOVENTRICULAR BLOCK FIRST DEGREE [None]
  - CONDITION AGGRAVATED [None]
  - LOSS OF CONSCIOUSNESS [None]
  - HYPOGLYCAEMIA [None]
  - HYPOTENSION [None]
  - CHEST PAIN [None]
  - MULTIPLE DRUG OVERDOSE ACCIDENTAL [None]
  - BLOOD UREA INCREASED [None]
  - HYPOTHERMIA [None]
  - DYSPNOEA [None]
  - OXYGEN SATURATION DECREASED [None]
  - BLOOD CREATININE INCREASED [None]
